FAERS Safety Report 22212562 (Version 2)
Quarter: 2023Q2

REPORT INFORMATION
  Report Type: Spontaneous
  Country: US (occurrence: US)
  Receive Date: 20230414
  Receipt Date: 20230420
  Transmission Date: 20230722
  Serious: No
  Sender: FDA-Public Use
  Company Number: US-009507513-2304USA002489

PATIENT
  Age: 46 Year
  Sex: Female

DRUGS (3)
  1. TEMODAR [Suspect]
     Active Substance: TEMOZOLOMIDE
     Indication: Brain neoplasm malignant
     Route: 048
  2. STROMECTOL [Suspect]
     Active Substance: IVERMECTIN
     Indication: Rosacea
     Dosage: 12 MILLIGRAM (MG), ONCE A MONTH (QM)
     Route: 048
  3. TAMOXIFEN [Suspect]
     Active Substance: TAMOXIFEN
     Indication: Breast cancer
     Route: 048

REACTIONS (5)
  - Rosacea [Not Recovered/Not Resolved]
  - Product availability issue [Unknown]
  - Prescription drug used without a prescription [Unknown]
  - Product prescribing issue [Unknown]
  - Product use in unapproved indication [Unknown]

NARRATIVE: CASE EVENT DATE: 20230401
